FAERS Safety Report 9229377 (Version 1)
Quarter: 2013Q2

REPORT INFORMATION
  Report Type: Spontaneous
  Country: US (occurrence: US)
  Receive Date: 20130412
  Receipt Date: 20130412
  Transmission Date: 20140414
  Serious: Yes (Hospitalization)
  Sender: FDA-Public Use
  Company Number: US-ASTELLAS-2013US001129

PATIENT
  Age: 51 Year
  Sex: Male

DRUGS (1)
  1. PROGRAF [Suspect]
     Indication: ORGAN TRANSPLANT
     Dosage: 1 MG, BID
     Route: 048
     Dates: start: 20120919

REACTIONS (1)
  - Atrial fibrillation [Unknown]
